FAERS Safety Report 24328420 (Version 1)
Quarter: 2024Q3

REPORT INFORMATION
  Report Type: Report from Study
  Country: CA (occurrence: CA)
  Receive Date: 20240917
  Receipt Date: 20240917
  Transmission Date: 20241016
  Serious: Yes (Hospitalization, Other)
  Sender: DR REDDYS
  Company Number: CA-drreddys-SPO/CAN/22/0156358

PATIENT
  Age: 89 Year
  Sex: Female

DRUGS (1)
  1. ZOLEDRONIC [Suspect]
     Active Substance: ZOLEDRONIC ACID
     Indication: Osteoporosis
     Dosage: 5 MG (BASE)/100 ML
     Route: 042
     Dates: start: 20180227, end: 20221027

REACTIONS (3)
  - Crohn^s disease [Unknown]
  - Cough [Unknown]
  - Injection site discomfort [Unknown]

NARRATIVE: CASE EVENT DATE: 20221019
